FAERS Safety Report 5401493-3 (Version None)
Quarter: 2007Q3

REPORT INFORMATION
  Report Type: 
  Country: None (occurrence: None)
  Receive Date: 20070731
  Receipt Date: 20061009
  Transmission Date: 20080115
  Serious: No
  Sender: FDA-Public Use
  Company Number: A0622965A

PATIENT
  Sex: Female

DRUGS (1)
  1. DYAZIDE [Suspect]
     Indication: HYPERTENSION
     Route: 065

REACTIONS (1)
  - MUSCLE SPASMS [None]
